FAERS Safety Report 4845326-2 (Version None)
Quarter: 2005Q4

REPORT INFORMATION
  Report Type: 
  Country: None (occurrence: None)
  Receive Date: 20051205
  Receipt Date: 20051127
  Transmission Date: 20060501
  Serious: Yes (Other)
  Sender: FDA-Public Use
  Company Number: AU-GLAXOSMITHKLINE-B0401959A

PATIENT
  Age: 49 Year
  Sex: Female

DRUGS (1)
  1. ZYBAN [Suspect]

REACTIONS (3)
  - FALL [None]
  - LOSS OF CONSCIOUSNESS [None]
  - RIB FRACTURE [None]
